FAERS Safety Report 7220496-X (Version None)
Quarter: 2011Q1

REPORT INFORMATION
  Report Type: 
  Country: None (occurrence: None)
  Receive Date: 20110111
  Receipt Date: 20110104
  Transmission Date: 20110831
  Serious: Yes (Other)
  Sender: FDA-Public Use
  Company Number: US-US-EMD SERONO, INC.-235102K09USA

PATIENT
  Sex: Female

DRUGS (2)
  1. REBIF [Suspect]
     Route: 058
     Dates: start: 20090101
  2. REBIF [Suspect]
     Indication: MULTIPLE SCLEROSIS
     Route: 058
     Dates: start: 20090410, end: 20090101

REACTIONS (8)
  - NECK PAIN [None]
  - MUSCULOSKELETAL PAIN [None]
  - INFLUENZA LIKE ILLNESS [None]
  - RASH PRURITIC [None]
  - VOMITING [None]
  - SEPSIS [None]
  - INJECTION SITE HAEMATOMA [None]
  - NAUSEA [None]
